FAERS Safety Report 5636514-6 (Version None)
Quarter: 2008Q1

REPORT INFORMATION
  Report Type: 
  Country: None (occurrence: None)
  Receive Date: 20080219
  Receipt Date: 20080219
  Transmission Date: 20080703
  Serious: No
  Sender: FDA-Public Use
  Company Number: None

PATIENT
  Age: 60 Year
  Sex: Female
  Weight: 86.1834 kg

DRUGS (2)
  1. GABAPENTIN [Suspect]
     Indication: RESTLESS LEGS SYNDROME
     Dosage: 1 TAB AT 9PM + AT HS PO
     Route: 048
     Dates: start: 20071101, end: 20080216
  2. GABAPENTIN [Suspect]
     Indication: SLEEP DISORDER
     Dosage: 1 TAB AT 9PM + AT HS PO
     Route: 048
     Dates: start: 20071101, end: 20080216

REACTIONS (4)
  - HEADACHE [None]
  - PHARMACEUTICAL PRODUCT COMPLAINT [None]
  - PRURITUS [None]
  - RASH [None]
